FAERS Safety Report 5881814-8 (Version None)
Quarter: 2008Q3

REPORT INFORMATION
  Report Type: 
  Country: None (occurrence: None)
  Receive Date: 20080912
  Receipt Date: 20080828
  Transmission Date: 20090109
  Serious: No
  Sender: FDA-Public Use
  Company Number: US-ABBOTT-08P-163-0463172-00

PATIENT
  Sex: Female
  Weight: 54.48 kg

DRUGS (2)
  1. HUMIRA [Suspect]
     Indication: CROHN'S DISEASE
     Route: 058
     Dates: start: 20080622
  2. HUMIRA [Suspect]
     Route: 058
     Dates: start: 20080622, end: 20080622

REACTIONS (7)
  - ABDOMINAL PAIN UPPER [None]
  - HEADACHE [None]
  - INJECTION SITE HAEMATOMA [None]
  - INJECTION SITE HAEMORRHAGE [None]
  - NAUSEA [None]
  - PARAESTHESIA [None]
  - SALIVARY HYPERSECRETION [None]
